FAERS Safety Report 7961877-6 (Version None)
Quarter: 2011Q4

REPORT INFORMATION
  Report Type: 
  Country: None (occurrence: None)
  Receive Date: 20111202
  Receipt Date: 20111202
  Transmission Date: 20120403
  Serious: Yes (Other)
  Sender: FDA-Public Use
  Company Number: None

PATIENT
  Sex: Female

DRUGS (1)
  1. COPAXONE [Suspect]
     Indication: MULTIPLE SCLEROSIS
     Dosage: 20MG/ML 20MG DAILY SQ
     Route: 058
     Dates: start: 20100101

REACTIONS (4)
  - INCONTINENCE [None]
  - SYNCOPE [None]
  - CHILLS [None]
  - FLUSHING [None]
